FAERS Safety Report 7227636-7 (Version None)
Quarter: 2011Q1

REPORT INFORMATION
  Report Type: 
  Country: None (occurrence: None)
  Receive Date: 20110114
  Receipt Date: 20110111
  Transmission Date: 20110831
  Serious: No
  Sender: FDA-Public Use
  Company Number: US-PFIZER INC-2011007659

PATIENT
  Sex: Male
  Weight: 85.261 kg

DRUGS (2)
  1. ZYRTEC [Concomitant]
     Indication: NASAL CONGESTION
     Dosage: UNK
     Route: 048
  2. CLINDAMYCIN HCL [Suspect]
     Indication: UPPER RESPIRATORY TRACT INFECTION
     Dosage: 300 MG, 2X/DAY
     Route: 048
     Dates: start: 20101224, end: 20110101

REACTIONS (1)
  - DRUG INEFFECTIVE [None]
